FAERS Safety Report 10467114 (Version 3)
Quarter: 2015Q1

REPORT INFORMATION
  Report Type: Spontaneous
  Country: US (occurrence: US)
  Receive Date: 20140922
  Receipt Date: 20150303
  Transmission Date: 20150720
  Serious: Yes (Death, Hospitalization, Other)
  Sender: FDA-Public Use
  Company Number: US-009507513-1409USA009902

PATIENT
  Sex: Male
  Weight: 81.63 kg

DRUGS (2)
  1. JANUVIA [Suspect]
     Active Substance: SITAGLIPTIN PHOSPHATE
     Indication: TYPE 2 DIABETES MELLITUS
     Dosage: 25 MG, BID
     Route: 048
     Dates: start: 2011, end: 2012
  2. JANUVIA [Suspect]
     Active Substance: SITAGLIPTIN PHOSPHATE
     Dosage: 25 MG, QD
     Route: 048
     Dates: start: 20110621

REACTIONS (29)
  - Pancreatic carcinoma [Fatal]
  - Kyphosis [Unknown]
  - Hiatus hernia [Unknown]
  - Renal mass [Unknown]
  - Escherichia sepsis [Unknown]
  - Hypertension [Unknown]
  - Decreased appetite [Unknown]
  - Iron deficiency anaemia [Not Recovered/Not Resolved]
  - Diabetic neuropathy [Unknown]
  - Benign prostatic hyperplasia [Unknown]
  - Cholelithiasis [Unknown]
  - Hyperglycaemia [Unknown]
  - Ascites [Unknown]
  - Retinopathy [Unknown]
  - Dyslipidaemia [Unknown]
  - Blindness unilateral [Unknown]
  - Pancreatitis [Unknown]
  - Vision blurred [Unknown]
  - Cardiac failure congestive [Not Recovered/Not Resolved]
  - Spinal column stenosis [Unknown]
  - Hyperparathyroidism secondary [Unknown]
  - Osteoarthritis [Unknown]
  - Lung infiltration [Unknown]
  - Chronic kidney disease [Not Recovered/Not Resolved]
  - Cerebral small vessel ischaemic disease [Unknown]
  - Back pain [Not Recovered/Not Resolved]
  - Hyponatraemia [Unknown]
  - Tuberculin test positive [Unknown]
  - Joint stiffness [Unknown]

NARRATIVE: CASE EVENT DATE: 201104
